FAERS Safety Report 14502805 (Version 1)
Quarter: 2018Q1

REPORT INFORMATION
  Report Type: Spontaneous
  Country: US (occurrence: US)
  Receive Date: 20180207
  Receipt Date: 20180207
  Transmission Date: 20180509
  Serious: No
  Sender: FDA-Public Use
  Company Number: None

PATIENT
  Age: 48 Year
  Sex: Female

DRUGS (1)
  1. ENBREL [Suspect]
     Active Substance: ETANERCEPT

REACTIONS (6)
  - Drug dose omission [None]
  - Fatigue [None]
  - Headache [None]
  - Therapy cessation [None]
  - Infection [None]
  - Economic problem [None]

NARRATIVE: CASE EVENT DATE: 20180206
